FAERS Safety Report 9384917 (Version 1)
Quarter: 2013Q3

REPORT INFORMATION
  Report Type: Spontaneous
  Country: BR (occurrence: BR)
  Receive Date: 20130705
  Receipt Date: 20130705
  Transmission Date: 20140515
  Serious: Yes (Other)
  Sender: FDA-Public Use
  Company Number: BR-ELI_LILLY_AND_COMPANY-BR201306008069

PATIENT
  Age: 61 Year
  Sex: Female
  Weight: 52 kg

DRUGS (3)
  1. HUMALOG MIX 25 [Suspect]
     Dosage: UNK, TID
     Route: 058
     Dates: start: 20130621, end: 20130624
  2. HUMALOG [Suspect]
     Indication: TYPE 2 DIABETES MELLITUS
     Dosage: UNK, TID
     Route: 058
  3. CLAVULIN [Concomitant]
     Indication: URINARY TRACT INFECTION
     Dosage: UNK, TID
     Route: 065

REACTIONS (2)
  - Vision blurred [Recovered/Resolved]
  - Wrong drug administered [Unknown]
